FAERS Safety Report 20663565 (Version 1)
Quarter: 2022Q2

REPORT INFORMATION
  Report Type: Spontaneous
  Country: US (occurrence: US)
  Receive Date: 20220401
  Receipt Date: 20220401
  Transmission Date: 20220721
  Serious: Yes (Hospitalization)
  Sender: FDA-Public Use
  Company Number: US-BRISTOL-MYERS SQUIBB COMPANY-2022-012057

PATIENT
  Sex: Female
  Weight: 59.8 kg

DRUGS (1)
  1. POMALYST [Suspect]
     Active Substance: POMALIDOMIDE
     Indication: Plasma cell myeloma
     Dosage: 4 MG QD, 21 D ON AND 7 D OFF
     Route: 048
     Dates: start: 20180824

REACTIONS (2)
  - Cystitis [Unknown]
  - Peripheral swelling [Not Recovered/Not Resolved]
